FAERS Safety Report 23973823 (Version 2)
Quarter: 2024Q4

REPORT INFORMATION
  Report Type: Spontaneous
  Country: GB (occurrence: GB)
  Receive Date: 20240613
  Receipt Date: 20241024
  Transmission Date: 20250115
  Serious: Yes (Congenital Anomaly, Other)
  Sender: CSL BEHRING
  Company Number: GB-BEH-2024173443

PATIENT

DRUGS (6)
  1. HUMAN IMMUNOGLOBULIN G [Suspect]
     Active Substance: HUMAN IMMUNOGLOBULIN G
     Indication: Product used for unknown indication
     Route: 042
  2. LEVETIRACETAM [Suspect]
     Active Substance: LEVETIRACETAM
     Indication: Product used for unknown indication
     Route: 065
  3. ACYCLOVIR [Suspect]
     Active Substance: ACYCLOVIR
     Indication: Product used for unknown indication
     Route: 064
  4. ACYCLOVIR [Suspect]
     Active Substance: ACYCLOVIR
     Route: 064
  5. MEROPENEM [Suspect]
     Active Substance: MEROPENEM
     Indication: Product used for unknown indication
     Route: 064
  6. METHYLPREDNISOLONE [Suspect]
     Active Substance: METHYLPREDNISOLONE
     Indication: Product used for unknown indication
     Route: 064

REACTIONS (4)
  - Urinary tract malformation [Unknown]
  - Foetal renal imaging abnormal [Unknown]
  - Premature delivery [Unknown]
  - Foetal exposure during pregnancy [Unknown]
